FAERS Safety Report 9970310 (Version 1)
Quarter: 2014Q1

REPORT INFORMATION
  Report Type: Spontaneous
  Country: US (occurrence: None)
  Receive Date: 20140218
  Receipt Date: 20140218
  Transmission Date: 20141002
  Serious: Yes (Other)
  Sender: FDA-Public Use
  Company Number: OMPQ-PR-1307S-0956

PATIENT
  Age: 46 Year
  Sex: Female
  Weight: 45.36 kg

DRUGS (2)
  1. IOHEXOL [Suspect]
     Indication: WEIGHT DECREASED
     Dosage: 100 ML, SINGLE DOSE, INTRAVENOUS
     Route: 042
     Dates: start: 20130717, end: 20130717
  2. IOHEXOL [Suspect]
     Indication: DIAGNOSTIC PROCEDURE
     Dosage: 100 ML, SINGLE DOSE, INTRAVENOUS
     Route: 042
     Dates: start: 20130717, end: 20130717

REACTIONS (1)
  - Contrast media reaction [None]
